FAERS Safety Report 15249029 (Version 2)
Quarter: 2018Q3

REPORT INFORMATION
  Report Type: Spontaneous
  Country: US (occurrence: US)
  Receive Date: 20180807
  Receipt Date: 20180910
  Transmission Date: 20181010
  Serious: No
  Sender: FDA-Public Use
  Company Number: US-ASTRAZENECA-2018SE98414

PATIENT
  Age: 57 Year
  Sex: Male
  Weight: 77.6 kg

DRUGS (2)
  1. TUDORZA PRESSAIR [Suspect]
     Active Substance: ACLIDINIUM BROMIDE
     Indication: EMPHYSEMA
     Dosage: 400 MCG ONE RESPIRATORY INHALATION EVERY 12 HOURS
     Route: 055
     Dates: start: 20180712
  2. TUDORZA PRESSAIR [Suspect]
     Active Substance: ACLIDINIUM BROMIDE
     Indication: CHRONIC OBSTRUCTIVE PULMONARY DISEASE
     Dosage: 400 MCG ONE RESPIRATORY INHALATION EVERY 12 HOURS
     Route: 055
     Dates: start: 20180712

REACTIONS (6)
  - Circumstance or information capable of leading to medication error [Not Recovered/Not Resolved]
  - Intentional device misuse [Not Recovered/Not Resolved]
  - Arthritis [Not Recovered/Not Resolved]
  - Device issue [Unknown]
  - Drug dose omission [Not Recovered/Not Resolved]
  - Lung disorder [Not Recovered/Not Resolved]

NARRATIVE: CASE EVENT DATE: 201807
